FAERS Safety Report 7470648-9 (Version None)
Quarter: 2011Q2

REPORT INFORMATION
  Report Type: 
  Country: None (occurrence: None)
  Receive Date: 20110510
  Receipt Date: 20110408
  Transmission Date: 20111010
  Serious: No
  Sender: FDA-Public Use
  Company Number: US-BAYER-2011-032097

PATIENT
  Age: 31 Year
  Sex: Female
  Weight: 79 kg

DRUGS (1)
  1. ALEVE (CAPLET) [Suspect]
     Indication: PRODUCT USED FOR UNKNOWN INDICATION
     Dosage: . CONSUMER WAS NOT SURE WHAT COUNT SIZE WAS USED NEITHER THE LOT NUMBER OR EXPIRATION DATE.
     Route: 048
     Dates: start: 20030101, end: 20030101

REACTIONS (5)
  - PRURITUS [None]
  - PARAESTHESIA [None]
  - RASH MACULAR [None]
  - HYPERSENSITIVITY [None]
  - FEELING HOT [None]
